FAERS Safety Report 10256758 (Version 3)
Quarter: 2014Q4

REPORT INFORMATION
  Report Type: Spontaneous
  Country: US (occurrence: US)
  Receive Date: 20140624
  Receipt Date: 20141201
  Transmission Date: 20150528
  Serious: No
  Sender: FDA-Public Use
  Company Number: US-009507513-1406USA006404

PATIENT
  Age: 23 Year
  Sex: Female
  Weight: 89.8 kg

DRUGS (3)
  1. NEXPLANON [Suspect]
     Active Substance: ETONOGESTREL
     Indication: CONTRACEPTION
     Dosage: , TAOTAL DAILY DOSE WAS REPORTED S 68MG, 3 YEAR IMPLANT
     Route: 058
     Dates: start: 20131104
  2. CELEXA [Concomitant]
     Active Substance: CITALOPRAM HYDROBROMIDE
  3. TEGRETOL [Concomitant]
     Active Substance: CARBAMAZEPINE

REACTIONS (4)
  - Vomiting [Not Recovered/Not Resolved]
  - Menorrhagia [Unknown]
  - Nausea [Not Recovered/Not Resolved]
  - Polymenorrhoea [Unknown]

NARRATIVE: CASE EVENT DATE: 201311
